FAERS Safety Report 9418320 (Version 1)
Quarter: 2013Q3

REPORT INFORMATION
  Report Type: Spontaneous
  Country: AU (occurrence: AU)
  Receive Date: 20130725
  Receipt Date: 20130725
  Transmission Date: 20140515
  Serious: Yes (Hospitalization)
  Sender: FDA-Public Use
  Company Number: AU-009507513-1307AUS007827

PATIENT
  Age: 4 Year
  Sex: Female
  Weight: 21 kg

DRUGS (2)
  1. CLARATYNE [Suspect]
     Dosage: EXTRA 10 ML
     Route: 048
     Dates: start: 20061111
  2. CLARATYNE [Suspect]
     Dosage: 5 ML
     Route: 048
     Dates: start: 20061111

REACTIONS (2)
  - Medication error [Unknown]
  - Overdose [Unknown]
